FAERS Safety Report 8063071-X (Version None)
Quarter: 2012Q1

REPORT INFORMATION
  Report Type: 
  Country: None (occurrence: None)
  Receive Date: 20120117
  Receipt Date: 20120102
  Transmission Date: 20120608
  Serious: Yes (Death, Life-Threatening, Hospitalization, Other)
  Sender: FDA-Public Use
  Company Number: 2012MA000001

PATIENT
  Sex: Female
  Weight: 64.184 kg

DRUGS (1)
  1. DIGOXIN [Suspect]
     Indication: PRODUCT USED FOR UNKNOWN INDICATION
     Dosage: 0.25 MG;QD;PO
     Route: 048
     Dates: start: 20051128, end: 20070915

REACTIONS (11)
  - LEFT VENTRICULAR HYPERTROPHY [None]
  - DYSPNOEA [None]
  - MALAISE [None]
  - MYOCARDIAL INFARCTION [None]
  - TRICUSPID VALVE INCOMPETENCE [None]
  - MITRAL VALVE INCOMPETENCE [None]
  - AORTIC CALCIFICATION [None]
  - AORTIC VALVE INCOMPETENCE [None]
  - AORTIC STENOSIS [None]
  - CARDIAC MURMUR [None]
  - PALLOR [None]
